FAERS Safety Report 25034250 (Version 1)
Quarter: 2025Q1

REPORT INFORMATION
  Report Type: Spontaneous
  Country: US (occurrence: US)
  Receive Date: 20250304
  Receipt Date: 20250304
  Transmission Date: 20250409
  Serious: No
  Sender: ELI LILLY AND COMPANY
  Company Number: US-ELI_LILLY_AND_COMPANY-US202502021292

PATIENT
  Age: 60 Year

DRUGS (1)
  1. EBGLYSS [Suspect]
     Active Substance: LEBRIKIZUMAB-LBKZ
     Indication: Product used for unknown indication
     Route: 065

REACTIONS (6)
  - Skin disorder [Unknown]
  - Pruritus [Unknown]
  - Skin discomfort [Unknown]
  - Dry skin [Unknown]
  - Depressed mood [Unknown]
  - Erythema [Unknown]
